FAERS Safety Report 9127001 (Version 1)
Quarter: 2013Q1

REPORT INFORMATION
  Report Type: Spontaneous
  Country: IN (occurrence: IN)
  Receive Date: 20130122
  Receipt Date: 20130122
  Transmission Date: 20140127
  Serious: Yes (Death, Hospitalization)
  Sender: FDA-Public Use
  Company Number: IN-PFIZER INC-2013023043

PATIENT
  Sex: Male

DRUGS (1)
  1. SUTENT [Suspect]
     Indication: METASTATIC RENAL CELL CARCINOMA
     Dosage: 50 MG, 1X/DAY
     Route: 048
     Dates: start: 20120720

REACTIONS (4)
  - Death [Fatal]
  - Vomiting [Recovered/Resolved]
  - Asthenia [Recovered/Resolved]
  - Dyspnoea [Not Recovered/Not Resolved]
